FAERS Safety Report 20497101 (Version 1)
Quarter: 2022Q1

REPORT INFORMATION
  Report Type: Spontaneous
  Country: US (occurrence: US)
  Receive Date: 20220221
  Receipt Date: 20220221
  Transmission Date: 20220423
  Serious: Yes (Death, Hospitalization, Other)
  Sender: FDA-Public Use
  Company Number: US-GLAXOSMITHKLINE-US2022GSK029104

PATIENT
  Age: 77 Year
  Sex: Male

DRUGS (3)
  1. EPOPROSTENOL [Suspect]
     Active Substance: EPOPROSTENOL
     Indication: Pulmonary hypertension
     Dosage: UNK
  2. SILDENAFIL [Suspect]
     Active Substance: SILDENAFIL
     Indication: Pulmonary hypertension
     Dosage: UNK
  3. MILRINONE [Concomitant]
     Active Substance: MILRINONE
     Indication: Product used for unknown indication
     Dosage: UNK

REACTIONS (6)
  - Hypotension [Unknown]
  - Hypoxia [Unknown]
  - Right ventricular failure [Fatal]
  - Disease progression [Fatal]
  - General physical health deterioration [Unknown]
  - Respiratory failure [Unknown]
